FAERS Safety Report 18580975 (Version 1)
Quarter: 2020Q4

REPORT INFORMATION
  Report Type: Spontaneous
  Country: NL (occurrence: NL)
  Receive Date: 20201204
  Receipt Date: 20201204
  Transmission Date: 20210114
  Serious: Yes (Other)
  Sender: FDA-Public Use
  Company Number: NL-PFIZER INC-2020474617

PATIENT
  Age: 55 Year
  Sex: Female

DRUGS (1)
  1. TERRA-CORTRIL [Suspect]
     Active Substance: HYDROCORTISONE ACETATE\OXYTETRACYCLINE HYDROCHLORIDE
     Dosage: 3 DROP, 3X/DAY (IN EACH EAR)
     Route: 001
     Dates: start: 20201201

REACTIONS (3)
  - Deafness bilateral [Not Recovered/Not Resolved]
  - Ear discomfort [Not Recovered/Not Resolved]
  - Feeling abnormal [Not Recovered/Not Resolved]

NARRATIVE: CASE EVENT DATE: 20201201
